FAERS Safety Report 8450287-3 (Version None)
Quarter: 2012Q2

REPORT INFORMATION
  Report Type: 
  Country: None (occurrence: None)
  Receive Date: 20120613
  Receipt Date: 20120531
  Transmission Date: 20120825
  Serious: Yes (Hospitalization)
  Sender: FDA-Public Use
  Company Number: US-2011-10427

PATIENT
  Age: 49 Year
  Sex: Male

DRUGS (4)
  1. OPC-41061 (TOLVAPTAN) TABLET, 15MG MILLIGRAM(S) [Suspect]
     Indication: CONGENITAL CYSTIC KIDNEY DISEASE
     Dosage: 45/15MG SPLIT DOSE, ORAL
     Route: 048
     Dates: start: 20110301
  2. DOXYCLIN (DOXYCYCLINE HYCLATE) [Concomitant]
  3. ALLOPURINOL [Concomitant]
  4. FOLIC ACID [Concomitant]

REACTIONS (5)
  - POLYNEUROPATHY [None]
  - THROMBOSIS [None]
  - HYPERTENSION [None]
  - CONGENITAL CYSTIC KIDNEY DISEASE [None]
  - FOLATE DEFICIENCY [None]
